FAERS Safety Report 24545941 (Version 1)
Quarter: 2024Q4

REPORT INFORMATION
  Report Type: Spontaneous
  Country: US (occurrence: US)
  Receive Date: 20241024
  Receipt Date: 20241024
  Transmission Date: 20250115
  Serious: Yes (Other)
  Sender: SANOFI AVENTIS
  Company Number: US-SA-2024SA305487

PATIENT
  Age: 52 Year
  Sex: Female

DRUGS (28)
  1. DUPIXENT [Suspect]
     Active Substance: DUPILUMAB
     Indication: Nasal polyps
     Dosage: 300 MG, FREQUENCY: OTHER
     Route: 058
     Dates: start: 20240422
  2. BACLOFEN [Concomitant]
     Active Substance: BACLOFEN
  3. CLOBETASOL [Concomitant]
     Active Substance: CLOBETASOL
  4. DIGOXIN [Concomitant]
     Active Substance: DIGOXIN
  5. HYDROXYZINE [Concomitant]
     Active Substance: HYDROXYZINE HYDROCHLORIDE
  6. ATROVENT [Concomitant]
     Active Substance: IPRATROPIUM BROMIDE
  7. MONTELUKAST [Concomitant]
     Active Substance: MONTELUKAST
  8. PANTOPRAZOLE [Concomitant]
     Active Substance: PANTOPRAZOLE
  9. DIFLUCAN [Concomitant]
     Active Substance: FLUCONAZOLE
  10. ELIQUIS [Concomitant]
     Active Substance: APIXABAN
  11. HYDROCORTISONE [Concomitant]
     Active Substance: HYDROCORTISONE
  12. PULMICORT TURBUHALER [Concomitant]
     Active Substance: BUDESONIDE
  13. FARXIGA [Concomitant]
     Active Substance: DAPAGLIFLOZIN PROPANEDIOL
  14. METOPROLOL [Concomitant]
     Active Substance: METOPROLOL
  15. ESCITALOPRAM [Concomitant]
     Active Substance: ESCITALOPRAM OXALATE
  16. AZELASTINE [Concomitant]
     Active Substance: AZELASTINE
  17. BASAGLAR [Concomitant]
     Active Substance: INSULIN GLARGINE
  18. LOSARTAN [Concomitant]
     Active Substance: LOSARTAN
  19. METFORMIN [Concomitant]
     Active Substance: METFORMIN HYDROCHLORIDE
  20. OZEMPIC [Concomitant]
     Active Substance: SEMAGLUTIDE
  21. SPIRONOLACTONE [Concomitant]
     Active Substance: SPIRONOLACTONE
  22. TRIAMCINOLONE [Concomitant]
     Active Substance: TRIAMCINOLONE
  23. CEFUROXIME [Concomitant]
     Active Substance: CEFUROXIME
  24. ROSUVASTATIN [Concomitant]
     Active Substance: ROSUVASTATIN
  25. DULOXETINE [Concomitant]
     Active Substance: DULOXETINE
  26. VENTOLIN [Concomitant]
     Active Substance: ALBUTEROL SULFATE
  27. OTEZLA [Concomitant]
     Active Substance: APREMILAST
  28. ZYRTEC [Concomitant]
     Active Substance: CETIRIZINE HYDROCHLORIDE

REACTIONS (1)
  - Pneumonia [Unknown]

NARRATIVE: CASE EVENT DATE: 20241010
